FAERS Safety Report 13916626 (Version 3)
Quarter: 2019Q1

REPORT INFORMATION
  Report Type: Report from Study
  Country: US (occurrence: US)
  Receive Date: 20170829
  Receipt Date: 20190201
  Transmission Date: 20190417
  Serious: Yes (Other)
  Sender: FDA-Public Use
  Company Number: US-JNJFOC-20170613030

PATIENT
  Sex: Male

DRUGS (6)
  1. IMBRUVICA [Suspect]
     Active Substance: IBRUTINIB
     Indication: CHRONIC LYMPHOCYTIC LEUKAEMIA
     Route: 048
     Dates: start: 20150901, end: 201609
  2. BIFIDOBACTERIUM LACTIS [Concomitant]
     Active Substance: BIFIDOBACTERIUM ANIMALIS LACTIS
  3. MULTIVITAMINS [Concomitant]
     Active Substance: VITAMINS
  4. ADVIL [Concomitant]
     Active Substance: IBUPROFEN
  5. CLARITIN [Concomitant]
     Active Substance: LORATADINE
  6. IMBRUVICA [Suspect]
     Active Substance: IBRUTINIB
     Indication: CHRONIC LYMPHOCYTIC LEUKAEMIA
     Route: 048

REACTIONS (7)
  - Blood count abnormal [Unknown]
  - Brain neoplasm [Recovered/Resolved]
  - Neutrophil count abnormal [Recovering/Resolving]
  - Product dose omission [Unknown]
  - Memory impairment [Recovered/Resolved]
  - Lymphocyte count increased [Unknown]
  - White blood cell count decreased [Recovering/Resolving]

NARRATIVE: CASE EVENT DATE: 2016
